FAERS Safety Report 22259931 (Version 1)
Quarter: 2023Q2

REPORT INFORMATION
  Report Type: Spontaneous
  Country: US (occurrence: US)
  Receive Date: 20230427
  Receipt Date: 20230427
  Transmission Date: 20230722
  Serious: No
  Sender: FDA-Public Use
  Company Number: US-ALLERGAN-2220347US

PATIENT
  Sex: Female
  Weight: 69.85 kg

DRUGS (2)
  1. RISEDRONATE SODIUM [Suspect]
     Active Substance: RISEDRONATE SODIUM
     Indication: Osteoporosis
     Dosage: 35 MG, Q WEEK
     Dates: start: 20220609
  2. MOTRIN [Concomitant]
     Active Substance: IBUPROFEN
     Indication: Discomfort
     Dosage: UNK, PRN

REACTIONS (6)
  - Costochondritis [Not Recovered/Not Resolved]
  - Pain [Not Recovered/Not Resolved]
  - Fatigue [Unknown]
  - Gait disturbance [Not Recovered/Not Resolved]
  - Insomnia [Unknown]
  - Chest pain [Not Recovered/Not Resolved]
